FAERS Safety Report 23999838 (Version 1)
Quarter: 2024Q2

REPORT INFORMATION
  Report Type: Spontaneous
  Country: US (occurrence: None)
  Receive Date: 20240620
  Receipt Date: 20240620
  Transmission Date: 20240715
  Serious: Yes (Hospitalization)
  Sender: FDA-Public Use
  Company Number: None

PATIENT
  Age: 51 Year
  Sex: Female

DRUGS (6)
  1. TACROLIMUS [Suspect]
     Active Substance: TACROLIMUS
     Indication: Renal transplant
     Dosage: FREQUENCY : DAILY;?
     Route: 048
     Dates: start: 20240510
  2. MYCOPHENOLIC ACID [Suspect]
     Active Substance: MYCOPHENOLIC ACID
     Indication: Renal transplant
     Dosage: FREQUENCY : DAILY;?
     Route: 048
     Dates: start: 20240510
  3. ASPIRIN [Concomitant]
     Active Substance: ASPIRIN
     Dates: start: 20240510
  4. famciclovir 250mg [Concomitant]
     Dates: start: 20240510
  5. PREDNISONE [Concomitant]
     Active Substance: PREDNISONE
     Dates: start: 20240510
  6. Bactrim 400-80mg [Concomitant]
     Dates: start: 20240510

REACTIONS (1)
  - Kidney infection [None]

NARRATIVE: CASE EVENT DATE: 20240614
